FAERS Safety Report 7278870-1 (Version None)
Quarter: 2011Q1

REPORT INFORMATION
  Report Type: 
  Country: None (occurrence: None)
  Receive Date: 20110207
  Receipt Date: 20110203
  Transmission Date: 20110831
  Serious: Yes (Hospitalization)
  Sender: FDA-Public Use
  Company Number: CH-ABBOTT-11P-151-0700235-00

PATIENT
  Age: 61 Year
  Sex: Male

DRUGS (9)
  1. DEPAKENE [Suspect]
     Route: 048
     Dates: start: 20100617
  2. REMERON [Suspect]
     Indication: DEPRESSION
     Route: 048
     Dates: start: 20100401, end: 20100430
  3. CIPROXINE [Concomitant]
     Indication: URINARY TRACT INFECTION
     Route: 048
     Dates: start: 20100415, end: 20100425
  4. TAMSULOSIN HCL [Concomitant]
     Indication: BENIGN PROSTATIC HYPERPLASIA
     Route: 048
     Dates: start: 20100325, end: 20100709
  5. PANTOZOL [Suspect]
     Indication: PRODUCT USED FOR UNKNOWN INDICATION
     Dates: start: 20100415
  6. DEPAKENE [Suspect]
     Route: 048
     Dates: start: 20100415, end: 20100420
  7. DEPAKENE [Suspect]
     Route: 048
     Dates: start: 20100421, end: 20100616
  8. DEPAKENE [Suspect]
     Indication: ABNORMAL BEHAVIOUR
     Route: 048
     Dates: start: 20100401, end: 20100414
  9. CIPRALEX FILM-COATED TABLETS [Suspect]
     Indication: DEPRESSION
     Route: 048
     Dates: start: 20100416

REACTIONS (1)
  - THROMBOSIS [None]
